FAERS Safety Report 9504428 (Version 1)
Quarter: 2013Q3

REPORT INFORMATION
  Report Type: Spontaneous
  Country: CN (occurrence: CN)
  Receive Date: 20130906
  Receipt Date: 20130906
  Transmission Date: 20140515
  Serious: Yes (Other)
  Sender: FDA-Public Use
  Company Number: CN-JNJFOC-20130816975

PATIENT
  Age: 29 Year
  Sex: Female

DRUGS (1)
  1. SPORANOX [Suspect]
     Indication: FUNGAL SKIN INFECTION
     Dosage: 100MG*14
     Route: 048
     Dates: start: 200801

REACTIONS (4)
  - Rash generalised [Recovered/Resolved]
  - Pruritus generalised [Recovered/Resolved]
  - Generalised oedema [Recovered/Resolved]
  - Generalised erythema [Recovered/Resolved]
